FAERS Safety Report 9768002 (Version 1)
Quarter: 2013Q4

REPORT INFORMATION
  Report Type: Spontaneous
  Country: US (occurrence: None)
  Receive Date: 20131217
  Receipt Date: 20131217
  Transmission Date: 20140711
  Serious: Yes (Hospitalization)
  Sender: FDA-Public Use
  Company Number: 2012BAX009866

PATIENT
  Age: 12 Year
  Sex: Female

DRUGS (1)
  1. GAMMAGARD LIQUID (IMMUNOGLOBULIN, NORMAL HUMAN)(SOLUTION FOR INFUSION [Suspect]
     Indication: PRIMARY IMMUNODEFICIENCY SYNDROME
     Dosage: (1 IN 1 M), INTRAVENOUS?(1 IN 1 M), INTRAVENOUS

REACTIONS (2)
  - Meningitis aseptic [None]
  - Headache [None]
